FAERS Safety Report 8631731 (Version 5)
Quarter: 2012Q4

REPORT INFORMATION
  Report Type: 
  Country: US (occurrence: US)
  Receive Date: 20120625
  Receipt Date: 20120920
  Transmission Date: 20130627
  Serious: No
  Sender: FDA-Public Use
  Company Number: US-PFIZER INC-2012148961

PATIENT
  Age: 77 Year
  Sex: Female
  Weight: 74.83 kg

DRUGS (5)
  1. LYRICA [Suspect]
     Indication: NEUROPATHY PERIPHERAL
     Dosage: 75 mg, 1x/day
     Route: 048
     Dates: start: 2012, end: 2012
  2. LYRICA [Suspect]
     Dosage: 50 mg, 2x/day
  3. LIPITOR [Concomitant]
     Dosage: 40 mg, UNK
  4. CELEBREX [Concomitant]
     Dosage: UNK
  5. DETROL [Concomitant]
     Dosage: UNK, 1x/day

REACTIONS (3)
  - Dizziness [Recovered/Resolved]
  - Activities of daily living impaired [Recovered/Resolved]
  - Drug intolerance [Unknown]
